FAERS Safety Report 10899793 (Version 1)
Quarter: 2015Q1

REPORT INFORMATION
  Report Type: Spontaneous
  Country: US (occurrence: US)
  Receive Date: 20150310
  Receipt Date: 20150310
  Transmission Date: 20150721
  Serious: No
  Sender: FDA-Public Use
  Company Number: US-GLAXOSMITHKLINE-US2015022517

PATIENT
  Sex: Male

DRUGS (1)
  1. FABIOR [Suspect]
     Active Substance: TAZAROTENE
     Indication: ACNE
     Dosage: UNK, QD
     Route: 061
     Dates: start: 20141118, end: 20150208

REACTIONS (6)
  - Scar [Recovering/Resolving]
  - Application site dryness [Recovering/Resolving]
  - Burning sensation [Recovering/Resolving]
  - Erythema [Recovering/Resolving]
  - Pruritus [Recovering/Resolving]
  - Scab [Recovering/Resolving]

NARRATIVE: CASE EVENT DATE: 201412
